FAERS Safety Report 6748005-X (Version None)
Quarter: 2010Q2

REPORT INFORMATION
  Report Type: 
  Country: None (occurrence: None)
  Receive Date: 20100528
  Receipt Date: 20100520
  Transmission Date: 20101027
  Serious: Yes (Hospitalization)
  Sender: FDA-Public Use
  Company Number: JP-AMGEN-US388941

PATIENT
  Age: 65 Year
  Sex: Male

DRUGS (4)
  1. ENBREL [Suspect]
     Indication: CONNECTIVE TISSUE DISORDER
     Route: 058
     Dates: start: 20080731, end: 20091215
  2. ENBREL [Suspect]
     Indication: RHEUMATOID ARTHRITIS
  3. NICARDIPINE HYDROCHLORIDE [Concomitant]
     Dosage: NOT PROVIDED
     Dates: end: 20100321
  4. PREDONINE [Concomitant]
     Route: 048

REACTIONS (2)
  - ASCITES [None]
  - VASCULITIS [None]
